FAERS Safety Report 9376200 (Version 1)
Quarter: 2013Q3

REPORT INFORMATION
  Report Type: Spontaneous
  Country: CA (occurrence: CA)
  Receive Date: 20130701
  Receipt Date: 20130701
  Transmission Date: 20140515
  Serious: Yes (Hospitalization, Other)
  Sender: FDA-Public Use
  Company Number: CA-JNJFOC-20130611908

PATIENT
  Sex: Male

DRUGS (1)
  1. ZYTIGA [Suspect]
     Indication: PRODUCT USED FOR UNKNOWN INDICATION
     Route: 048

REACTIONS (6)
  - Urosepsis [Unknown]
  - Troponin increased [Unknown]
  - Acute coronary syndrome [Unknown]
  - Confusional state [Unknown]
  - Altered state of consciousness [Unknown]
  - Loss of consciousness [Unknown]
